FAERS Safety Report 19555164 (Version 1)
Quarter: 2021Q3

REPORT INFORMATION
  Report Type: Spontaneous
  Country: US (occurrence: US)
  Receive Date: 20210715
  Receipt Date: 20210715
  Transmission Date: 20211014
  Serious: No
  Sender: FDA-Public Use
  Company Number: US-TEVA-2021-US-1933929

PATIENT
  Age: 55 Year
  Sex: Female

DRUGS (30)
  1. ROSUVASTATIN CALCIUM. [Suspect]
     Active Substance: ROSUVASTATIN CALCIUM
     Indication: TYPE V HYPERLIPIDAEMIA
     Route: 048
     Dates: start: 201703
  2. FUROSEMIDE 40MG [Concomitant]
     Active Substance: FUROSEMIDE
     Dosage: 80 MILLIGRAM DAILY;
     Route: 048
  3. SERTRALINE HYDROCHLORIDE 50MG [Concomitant]
     Dosage: 50 MILLIGRAM DAILY;
     Route: 048
  4. THEOPHYLLINE ER 300MG [Concomitant]
     Dosage: 300 MILLIGRAM DAILY; EXTENDED RELEASE
     Route: 048
  5. SPIRONOLACTONE 50MG [Concomitant]
     Active Substance: SPIRONOLACTONE
     Dosage: 50 MILLIGRAM DAILY;
     Route: 048
     Dates: end: 201804
  6. TELMISARTAN?HCTZ 80/25MG [Concomitant]
     Dosage: 1 DOSAGE FORMS DAILY;
     Route: 048
  7. DULOXETINE HCL 60MG [Concomitant]
     Dosage: 60 MILLIGRAM DAILY;
     Route: 048
  8. PROMETHAZINE HYDROCHLORIDE. [Concomitant]
     Active Substance: PROMETHAZINE HYDROCHLORIDE
     Dosage: EVERY 6 HOURS
     Route: 048
  9. POTASSIUM CHLORIDE ER 20MEQ [Concomitant]
     Dosage: 20 MILLIEQUIVALENTS DAILY; EXTENDED RELEASE, WITH FOOD
     Route: 048
  10. VALIUM 5MG [Concomitant]
     Dosage: 5 MILLIGRAM DAILY;
     Route: 048
  11. ROSUVASTATIN CALCIUM. [Suspect]
     Active Substance: ROSUVASTATIN CALCIUM
     Dosage: 20 MILLIGRAM DAILY; AS REQUIRED
     Route: 048
     Dates: start: 2017
  12. ROSUVASTATIN CALCIUM. [Suspect]
     Active Substance: ROSUVASTATIN CALCIUM
     Route: 048
     Dates: start: 201804
  13. TRAZODONE HYDROCHLORIDE. [Concomitant]
     Active Substance: TRAZODONE HYDROCHLORIDE
     Dosage: 100 MILLIGRAM DAILY; BEDTIME
     Route: 048
  14. ROSUVASTATIN CALCIUM. [Suspect]
     Active Substance: ROSUVASTATIN CALCIUM
     Route: 065
     Dates: end: 201701
  15. ROSUVASTATIN CALCIUM. [Suspect]
     Active Substance: ROSUVASTATIN CALCIUM
     Route: 048
     Dates: start: 201904
  16. VITAMIN E 100 UNIT [Concomitant]
     Dosage: 100 IU (INTERNATIONAL UNIT) DAILY;
     Route: 048
  17. AMLODIPINE BESILATE [Concomitant]
     Active Substance: AMLODIPINE BESYLATE
  18. HYDROCODONE?ACETAMINOPHEN 10/325MG [Concomitant]
     Dosage: EVERY 6 HOURS
     Route: 048
  19. PRENATAL [Concomitant]
     Active Substance: VITAMINS
     Dosage: 1 DOSAGE FORMS DAILY;
     Route: 048
  20. ALPRAZOLAM IMG [Concomitant]
     Dosage: 1 MILLIGRAM DAILY;
     Route: 048
  21. TIZANIDINE HYDROCHLORIDE 4MG [Concomitant]
     Dosage: EVERY 8 HOURS
     Route: 048
  22. BUSPIRONE HYDROCHLORIDE 10MG [Concomitant]
     Dosage: 20 MILLIGRAM DAILY;
     Route: 048
  23. BIOTIN MAXIMUM STRENGTH 10000MCG [Concomitant]
     Dosage: 100000 MICROGRAM DAILY;
     Route: 048
  24. CLONAZEPAM 1MG [Concomitant]
     Active Substance: CLONAZEPAM
     Dosage: 1 MILLIGRAM DAILY;
     Route: 048
  25. ROSUVASTATIN CALCIUM. [Suspect]
     Active Substance: ROSUVASTATIN CALCIUM
     Dosage: 10 MILLIGRAM DAILY;
     Route: 048
     Dates: start: 201609
  26. PANTOPRAZOLE SODIUM 40MG [Concomitant]
     Active Substance: PANTOPRAZOLE SODIUM
     Dosage: 40 MILLIGRAM DAILY; DELAYED RELEASE
     Route: 048
  27. CYANOCOBALAMIN 1000MCG/ML [Concomitant]
  28. VALSARTAN?HYDROCHLOROTHIAZIDE 160?12.5MG [Concomitant]
     Indication: HYPERTENSIVE HEART DISEASE
     Dosage: 1 DOSAGE FORMS DAILY;
     Route: 048
  29. AMITRIPTYLINE HYDROCHLORIDE 25MG [Concomitant]
     Dosage: 25 MILLIGRAM DAILY;
     Route: 048
  30. ALBUTEROL SULFATE 2.5MG/3ML [Concomitant]
     Route: 055

REACTIONS (2)
  - Drug intolerance [Recovering/Resolving]
  - Myalgia [Recovering/Resolving]

NARRATIVE: CASE EVENT DATE: 2017
